FAERS Safety Report 25238910 (Version 5)
Quarter: 2025Q2

REPORT INFORMATION
  Report Type: Spontaneous
  Country: CH (occurrence: MA)
  Receive Date: 20250425
  Receipt Date: 20250602
  Transmission Date: 20250716
  Serious: Yes (Hospitalization, Other)
  Sender: Thea Pharma
  Company Number: CH-THEA-2025000857

PATIENT
  Age: 17 Year
  Sex: Male

DRUGS (1)
  1. LATANOPROST [Suspect]
     Active Substance: LATANOPROST
     Indication: Developmental glaucoma
     Dates: start: 2025

REACTIONS (2)
  - Transient ischaemic attack [Recovering/Resolving]
  - Partial seizures [Unknown]

NARRATIVE: CASE EVENT DATE: 20250316
